FAERS Safety Report 13255274 (Version 1)
Quarter: 2017Q1

REPORT INFORMATION
  Report Type: Spontaneous
  Country: US (occurrence: US)
  Receive Date: 20170221
  Receipt Date: 20170221
  Transmission Date: 20170428
  Serious: No
  Sender: FDA-Public Use
  Company Number: US-JNJFOC-20170119525

PATIENT
  Age: 28 Year

DRUGS (1)
  1. INVEGA SUSTENNA [Suspect]
     Active Substance: PALIPERIDONE PALMITATE
     Indication: PRODUCT USED FOR UNKNOWN INDICATION
     Route: 030

REACTIONS (5)
  - Injection site swelling [Unknown]
  - Inappropriate schedule of drug administration [Unknown]
  - Injection site rash [Unknown]
  - Injection site pain [Unknown]
  - Wrong technique in product usage process [Unknown]
